FAERS Safety Report 9472847 (Version 1)
Quarter: 2013Q3

REPORT INFORMATION
  Report Type: Spontaneous
  Country: US (occurrence: None)
  Receive Date: 20130820
  Receipt Date: 20130820
  Transmission Date: 20140515
  Serious: Yes (Death)
  Sender: FDA-Public Use
  Company Number: SYM-2013-08969

PATIENT
  Age: 73 Year
  Sex: Female

DRUGS (1)
  1. XENAZINE [Suspect]
     Indication: HUNTINGTON^S DISEASE
     Dosage: 12.5MG EVERY MORNING, 25MG EVERY AFTERNOON AND 12.5MG AT BEDTIME, ORAL
     Dates: start: 20110808

REACTIONS (1)
  - Death [None]
